FAERS Safety Report 9065029 (Version 1)
Quarter: 2013Q1

REPORT INFORMATION
  Report Type: Spontaneous
  Country: US (occurrence: US)
  Receive Date: 20130128
  Receipt Date: 20130128
  Transmission Date: 20140127
  Serious: Yes (Death)
  Sender: FDA-Public Use
  Company Number: PHEH2013US002137

PATIENT
  Sex: Male

DRUGS (13)
  1. EXJADE [Suspect]
     Indication: IRON OVERLOAD
     Dosage: 1 DF, TID
     Route: 048
  2. CENTRUM [Concomitant]
     Dosage: UNK UKN, UNK
  3. ATENOLOL [Concomitant]
     Dosage: 50 MG, UNK
  4. SIMVASTATIN [Concomitant]
     Dosage: 40 MG, UNK
  5. CITRACAL PLUS [Concomitant]
     Dosage: UNK UKN, UNK
  6. GLIPIZIDE ER [Concomitant]
     Dosage: 2.5 MG, UNK
  7. ALTACE [Concomitant]
     Dosage: 10 MG, UNK
  8. FLOMAX ^CSL^ [Concomitant]
     Dosage: 0.4 MG, UNK
  9. FISH OIL [Concomitant]
     Dosage: UNK UKN, UNK
  10. ASPIRIN E.C [Concomitant]
     Dosage: 81 MG, UNK
  11. MAXZIDE [Concomitant]
     Dosage: UNK UKN, UNK
  12. NEUPOGEN [Concomitant]
     Dosage: UNK UKN, UNK
  13. ARANESP [Concomitant]
     Dosage: 300 UG, UNK

REACTIONS (1)
  - Death [Fatal]
